FAERS Safety Report 9595220 (Version 1)
Quarter: 2013Q3

REPORT INFORMATION
  Report Type: Spontaneous
  Country: US (occurrence: None)
  Receive Date: 20130927
  Receipt Date: 20130927
  Transmission Date: 20140515
  Serious: Yes (Hospitalization)
  Sender: FDA-Public Use
  Company Number: CABO-13003081

PATIENT
  Age: 72 Year
  Sex: Male

DRUGS (3)
  1. COMETRIQ [Suspect]
     Indication: PROSTATE CANCER
     Route: 048
     Dates: start: 20130729, end: 20130904
  2. VICODIN [Concomitant]
  3. DULCOLAX [Concomitant]

REACTIONS (5)
  - Blood potassium decreased [None]
  - Diarrhoea [None]
  - Hepatic enzyme increased [None]
  - Constipation [None]
  - Pain [None]
